FAERS Safety Report 8572149-3 (Version None)
Quarter: 2012Q3

REPORT INFORMATION
  Report Type: 
  Country: None (occurrence: None)
  Receive Date: 20120806
  Receipt Date: 20120710
  Transmission Date: 20120928
  Serious: No
  Sender: FDA-Public Use
  Company Number: US-009507513-1207USA002787

PATIENT

DRUGS (3)
  1. PEGASYS [Concomitant]
  2. RIBASPHERE [Concomitant]
  3. VICTRELIS [Suspect]
     Indication: HEPATITIS C
     Dosage: UNK
     Dates: start: 20120101

REACTIONS (2)
  - PAIN [None]
  - ARTHRALGIA [None]
